FAERS Safety Report 13387040 (Version 1)
Quarter: 2017Q1

REPORT INFORMATION
  Report Type: Spontaneous
  Country: TW (occurrence: TW)
  Receive Date: 20170330
  Receipt Date: 20170330
  Transmission Date: 20170429
  Serious: Yes (Hospitalization)
  Sender: FDA-Public Use
  Company Number: TW-BION-006138

PATIENT
  Age: 35 Year
  Sex: Female

DRUGS (2)
  1. VALPROIC ACID UNKNOWN [Suspect]
     Active Substance: VALPROIC ACID
     Indication: BIPOLAR I DISORDER
  2. ARIPIPRAZOLE. [Interacting]
     Active Substance: ARIPIPRAZOLE
     Indication: BIPOLAR I DISORDER

REACTIONS (4)
  - Hyperammonaemia [Recovered/Resolved]
  - Hyponatraemia [Recovered/Resolved]
  - Drug interaction [Unknown]
  - Drug ineffective [Not Recovered/Not Resolved]
